FAERS Safety Report 23321105 (Version 1)
Quarter: 2023Q4

REPORT INFORMATION
  Report Type: Spontaneous
  Country: JP (occurrence: JP)
  Receive Date: 20231220
  Receipt Date: 20231220
  Transmission Date: 20240109
  Serious: Yes (Hospitalization, Other)
  Sender: FDA-Public Use
  Company Number: JP-SUNPHARMA-2023R1-423525AA

PATIENT
  Age: 7 Decade
  Sex: Female

DRUGS (6)
  1. IRINOTECAN [Suspect]
     Active Substance: IRINOTECAN
     Indication: Rectal cancer recurrent
     Dosage: UNK
     Route: 065
  2. OXALIPLATIN [Suspect]
     Active Substance: OXALIPLATIN
     Indication: Rectal cancer recurrent
     Dosage: UNK
     Route: 065
  3. FLUOROURACIL [Suspect]
     Active Substance: FLUOROURACIL
     Indication: Rectal cancer recurrent
     Dosage: UNK
     Route: 065
  4. LEVOLEUCOVORIN CALCIUM [Suspect]
     Active Substance: LEVOLEUCOVORIN CALCIUM
     Indication: Rectal cancer recurrent
     Dosage: UNK
     Route: 065
  5. BEVACIZUMAB [Suspect]
     Active Substance: BEVACIZUMAB
     Indication: Rectal cancer recurrent
     Dosage: UNK
     Route: 065
  6. HERBALS [Concomitant]
     Active Substance: HERBALS
     Indication: Cachexia
     Dosage: 3.75 GRAM, BID
     Route: 065

REACTIONS (3)
  - Cachexia [Recovering/Resolving]
  - Mixed anxiety and depressive disorder [Recovering/Resolving]
  - Urinary tract infection [Unknown]
